FAERS Safety Report 4949679-6 (Version None)
Quarter: 2006Q1

REPORT INFORMATION
  Report Type: 
  Country: None (occurrence: None)
  Receive Date: 20060316
  Receipt Date: 20060303
  Transmission Date: 20060701
  Serious: Yes (Death, Other)
  Sender: FDA-Public Use
  Company Number: USA-2004-0016408

PATIENT
  Age: 19 Year
  Sex: Male

DRUGS (1)
  1. OXYCONTIN [Suspect]
     Indication: PHARYNGOLARYNGEAL PAIN
     Dosage: 80 MG,  Q12H,

REACTIONS (8)
  - ACCIDENTAL DEATH [None]
  - ACCIDENTAL OVERDOSE [None]
  - ANOXIC ENCEPHALOPATHY [None]
  - CARDIO-RESPIRATORY ARREST [None]
  - COMA [None]
  - DRUG TOXICITY [None]
  - SKIN DISCOLOURATION [None]
  - SNORING [None]
